FAERS Safety Report 13189238 (Version 5)
Quarter: 2017Q2

REPORT INFORMATION
  Report Type: Report from Study
  Country: US (occurrence: US)
  Receive Date: 20170206
  Receipt Date: 20170426
  Transmission Date: 20170830
  Serious: Yes (Other)
  Sender: FDA-Public Use
  Company Number: US-009507513-1701USA012274

PATIENT
  Sex: Male

DRUGS (1)
  1. PEMBROLIZUMAB. [Suspect]
     Active Substance: PEMBROLIZUMAB
     Indication: NON-SMALL CELL LUNG CANCER
     Dosage: UNK, (STRENGTH: 50 MG)
     Route: 042
     Dates: start: 20170123

REACTIONS (9)
  - Dyspnoea [Not Recovered/Not Resolved]
  - Weight decreased [Unknown]
  - Fatigue [Recovered/Resolved]
  - Dyspnoea [Recovered/Resolved]
  - Cough [Not Recovered/Not Resolved]
  - Pneumothorax [Unknown]
  - Pulmonary oedema [Unknown]
  - Fatigue [Not Recovered/Not Resolved]
  - Decreased appetite [Unknown]

NARRATIVE: CASE EVENT DATE: 2017
